FAERS Safety Report 10038737 (Version 1)
Quarter: 2014Q1

REPORT INFORMATION
  Report Type: Spontaneous
  Country: US (occurrence: US)
  Receive Date: 20140326
  Receipt Date: 20140326
  Transmission Date: 20141002
  Serious: Yes (Hospitalization, Other)
  Sender: FDA-Public Use
  Company Number: US-B.I. PHARMACEUTICALS,INC./RIDGEFIELD-2014-BI-12723BP

PATIENT
  Sex: Male

DRUGS (2)
  1. PRADAXA [Suspect]
     Indication: PRODUCT USED FOR UNKNOWN INDICATION
     Dosage: 150 MG
     Route: 048
  2. PLAVIX [Concomitant]
     Route: 065

REACTIONS (1)
  - Embolic stroke [Not Recovered/Not Resolved]
